FAERS Safety Report 24603002 (Version 2)
Quarter: 2024Q4

REPORT INFORMATION
  Report Type: Spontaneous
  Country: US (occurrence: US)
  Receive Date: 20241111
  Receipt Date: 20241114
  Transmission Date: 20250115
  Serious: Yes (Death)
  Sender: PFIZER
  Company Number: US-PFIZER INC-202400295978

PATIENT
  Age: 81 Year
  Sex: Female

DRUGS (14)
  1. IBRANCE [Suspect]
     Active Substance: PALBOCICLIB
     Indication: Breast cancer female
     Dosage: 100 MG DAILY FOR 21 DAYS ON, 7 DAYS OFF
     Route: 048
     Dates: start: 20220818
  2. ATORVASTATIN [Concomitant]
     Active Substance: ATORVASTATIN
     Dosage: 40 MG
  3. SUMATRIPTAN [Concomitant]
     Active Substance: SUMATRIPTAN
     Dosage: 25 MG
  4. TIZANIDINE [Concomitant]
     Active Substance: TIZANIDINE
     Dosage: 4 MG
  5. LETROZOLE [Concomitant]
     Active Substance: LETROZOLE
     Dosage: 2.5 MG
  6. MINERALS\VITAMINS [Concomitant]
     Active Substance: MINERALS\VITAMINS
     Dosage: UNK
  7. DIPHENHYDRAMINE [Concomitant]
     Active Substance: DIPHENHYDRAMINE
     Dosage: 25MG/10ML
  8. VITAMIN C [Concomitant]
     Active Substance: ASCORBIC ACID
     Dosage: 1000 UG
  9. MIRABEGRON [Concomitant]
     Active Substance: MIRABEGRON
     Dosage: 25 MG
  10. LEVOTHYROXINE [Concomitant]
     Active Substance: LEVOTHYROXINE
     Dosage: 25 UG
  11. ATORVASTATIN [Concomitant]
     Active Substance: ATORVASTATIN
     Dosage: 20 MG
  12. ALLOPURINOL [Concomitant]
     Active Substance: ALLOPURINOL
     Dosage: 300 MG
  13. AMITRIPTYLINE [Concomitant]
     Active Substance: AMITRIPTYLINE
     Dosage: 75 MG
  14. OXYCODONE [Concomitant]
     Active Substance: OXYCODONE
     Dosage: 5 MG

REACTIONS (2)
  - Neoplasm progression [Fatal]
  - Respiratory failure [Fatal]
